FAERS Safety Report 6090363-6 (Version None)
Quarter: 2009Q1

REPORT INFORMATION
  Report Type: 
  Country: None (occurrence: None)
  Receive Date: 20090220
  Receipt Date: 20090211
  Transmission Date: 20090719
  Serious: Yes (Hospitalization)
  Sender: FDA-Public Use
  Company Number: 100#03#2009-00509

PATIENT
  Age: 83 Year
  Sex: Female

DRUGS (5)
  1. LOSARTAN POTASSIUM [Suspect]
     Indication: HYPERTENSION
     Dosage: 150 MG
     Route: 048
  2. TORSEMIDE [Suspect]
     Indication: HYPERTENSION
     Dosage: 2.5 MG
     Route: 048
  3. ESCITALOPRAM [Concomitant]
  4. GLYBURIDE [Concomitant]
  5. ZOCOR CARDIEM ASS (ACETYLSALICYLIC ACID, SIMVASTATIN) [Concomitant]

REACTIONS (2)
  - BRADYCARDIA [None]
  - HYPERKALAEMIA [None]
